FAERS Safety Report 5428046-5 (Version None)
Quarter: 2007Q3

REPORT INFORMATION
  Report Type: 
  Country: None (occurrence: None)
  Receive Date: 20070828
  Receipt Date: 20070821
  Transmission Date: 20080115
  Serious: Yes (Other)
  Sender: FDA-Public Use
  Company Number: US-ROXANE LABORATORIES, INC-2007-BP-19630RO

PATIENT
  Age: 58 Year
  Sex: Female

DRUGS (5)
  1. PREDNISONE TAB [Suspect]
     Indication: PEMPHIGUS
     Route: 048
  2. PREDNISONE TAB [Suspect]
  3. PREDNISONE TAB [Suspect]
  4. PREDNISONE TAB [Suspect]
  5. MYCOPHENOLATE MOFETIL [Suspect]
     Indication: PEMPHIGUS

REACTIONS (10)
  - ANAEMIA [None]
  - CATARACT [None]
  - FATIGUE [None]
  - OBESITY [None]
  - OSTEONECROSIS [None]
  - OSTEOPOROSIS [None]
  - PALLOR [None]
  - RED BLOOD CELL COUNT DECREASED [None]
  - RETICULOCYTE COUNT DECREASED [None]
  - TYPE 2 DIABETES MELLITUS [None]
